FAERS Safety Report 9208119 (Version 1)
Quarter: 2013Q2

REPORT INFORMATION
  Report Type: Spontaneous
  Country: US (occurrence: US)
  Receive Date: 20130403
  Receipt Date: 20130403
  Transmission Date: 20140414
  Serious: No
  Sender: FDA-Public Use
  Company Number: US-ASTRAZENECA-2013SE18756

PATIENT
  Sex: Female

DRUGS (4)
  1. SEROQUEL [Suspect]
     Route: 048
  2. GEODON [Concomitant]
     Indication: MOOD SWINGS
  3. GEODON [Concomitant]
     Indication: ANXIETY
  4. LAMOTROGINE [Concomitant]

REACTIONS (1)
  - Abnormal behaviour [Unknown]
